FAERS Safety Report 4419984-0 (Version None)
Quarter: 2004Q3

REPORT INFORMATION
  Report Type: 
  Country: None (occurrence: None)
  Receive Date: 20040809
  Receipt Date: 20040318
  Transmission Date: 20050211
  Serious: No
  Sender: FDA-Public Use
  Company Number: US-GLAXOSMITHKLINE-A0503431A

PATIENT
  Age: 92 Year
  Sex: Male

DRUGS (5)
  1. PAXIL [Suspect]
     Dosage: 20MG PER DAY
     Route: 048
     Dates: start: 20010101
  2. VERAPAMIL [Concomitant]
  3. ASPIRIN [Concomitant]
  4. DARVOCET [Concomitant]
  5. FLOMAX [Concomitant]

REACTIONS (2)
  - DIARRHOEA [None]
  - LOOSE STOOLS [None]
